FAERS Safety Report 4706062-6 (Version None)
Quarter: 2005Q2

REPORT INFORMATION
  Report Type: 
  Country: None (occurrence: None)
  Receive Date: 20050627
  Receipt Date: 20050617
  Transmission Date: 20051028
  Serious: Yes (Hospitalization, Other)
  Sender: FDA-Public Use
  Company Number: 2005050721

PATIENT
  Age: 43 Year
  Sex: Female
  Weight: 73.4827 kg

DRUGS (10)
  1. XANAX [Suspect]
     Indication: GENERALISED ANXIETY DISORDER
     Dosage: SEE IMAGE
     Route: 048
     Dates: start: 19920101
  2. XANAX [Suspect]
     Indication: GENERALISED ANXIETY DISORDER
     Dosage: SEE IMAGE
     Route: 048
     Dates: start: 20050101
  3. CALAN [Concomitant]
  4. ALL OTHER THERAPEUTIC PRODUCTS (ALL OTHER THERAPEUTIC PRODUCTS) [Concomitant]
  5. CRESTOR [Concomitant]
  6. PREVACID [Concomitant]
  7. OXYGEN (OXYGEN) [Concomitant]
  8. CELEXA [Concomitant]
  9. VIOXX [Concomitant]
  10. SEROQUEL [Concomitant]

REACTIONS (9)
  - BACK PAIN [None]
  - INTERVERTEBRAL DISC DEGENERATION [None]
  - MUSCULOSKELETAL STIFFNESS [None]
  - NECK PAIN [None]
  - PAIN IN EXTREMITY [None]
  - PARAESTHESIA [None]
  - ROAD TRAFFIC ACCIDENT [None]
  - SHOULDER PAIN [None]
  - TREMOR [None]
